FAERS Safety Report 7422297-6 (Version None)
Quarter: 2011Q2

REPORT INFORMATION
  Report Type: 
  Country: None (occurrence: None)
  Receive Date: 20110419
  Receipt Date: 20110412
  Transmission Date: 20111010
  Serious: Yes (Hospitalization)
  Sender: FDA-Public Use
  Company Number: US-BIOGENIDEC-2011BI009439

PATIENT
  Age: 59 Year
  Sex: Female

DRUGS (1)
  1. AVONEX [Suspect]
     Indication: MULTIPLE SCLEROSIS
     Route: 030
     Dates: start: 20100429

REACTIONS (7)
  - PULMONARY THROMBOSIS [None]
  - PNEUMONIA [None]
  - VENOUS INSUFFICIENCY [None]
  - PULMONARY EMBOLISM [None]
  - CARDIAC DISORDER [None]
  - TROPONIN INCREASED [None]
  - FIBRIN D DIMER INCREASED [None]
